FAERS Safety Report 4733966-0 (Version None)
Quarter: 2005Q3

REPORT INFORMATION
  Report Type: 
  Country: None (occurrence: None)
  Receive Date: 20050721
  Receipt Date: 20050511
  Transmission Date: 20060218
  Serious: No
  Sender: FDA-Public Use
  Company Number: 2005SP000714

PATIENT
  Age: 70 Year
  Sex: Male

DRUGS (6)
  1. LUNESTA [Suspect]
     Indication: INSOMNIA
     Dosage: 3 MG; PRN
  2. ATACAND HCT [Concomitant]
  3. VYTORIN [Concomitant]
  4. TOPROL-XL [Concomitant]
  5. FOLTEX [Concomitant]
  6. ASPIRIN [Concomitant]

REACTIONS (2)
  - DRUG INEFFECTIVE [None]
  - INSOMNIA [None]
